FAERS Safety Report 4497131-7 (Version None)
Quarter: 2004Q4

REPORT INFORMATION
  Report Type: 
  Country: None (occurrence: None)
  Receive Date: 20041110
  Receipt Date: 20041028
  Transmission Date: 20050328
  Serious: Yes (Hospitalization)
  Sender: FDA-Public Use
  Company Number: SE-ABBOTT-04P-150-0279397-00

PATIENT
  Age: 56 Year
  Sex: Female

DRUGS (1)
  1. HUMIRA [Suspect]
     Indication: RHEUMATOID ARTHRITIS
     Route: 058
     Dates: start: 20031001

REACTIONS (3)
  - C-REACTIVE PROTEIN INCREASED [None]
  - DIVERTICULITIS [None]
  - INFECTION IN AN IMMUNOCOMPROMISED HOST [None]
